FAERS Safety Report 8036262-1 (Version None)
Quarter: 2012Q1

REPORT INFORMATION
  Report Type: 
  Country: None (occurrence: None)
  Receive Date: 20120111
  Receipt Date: 20120104
  Transmission Date: 20120608
  Serious: Yes (Hospitalization)
  Sender: FDA-Public Use
  Company Number: PHHY2011CA104133

PATIENT
  Sex: Male

DRUGS (11)
  1. SULCRATE [Concomitant]
     Dosage: 1 G, QID
  2. PANTOPRAZOLE SODIUM [Concomitant]
     Dosage: 40 MG, QD
  3. ZOFRAN [Concomitant]
     Dosage: 4 MG, Q6H
  4. AVODART [Concomitant]
     Dosage: 0.5 MG, QD
  5. SANDOSTATIN LAR [Suspect]
     Indication: RADIATION OESOPHAGITIS
     Dosage: 10 MG, EVERY 4 WEEKS
     Route: 030
     Dates: start: 20111111, end: 20111121
  6. DURAGESIC-100 [Concomitant]
     Dosage: 1 DF, ONCE A THREE DAY
  7. MAXERAN [Concomitant]
     Dosage: 10 MG, QID
  8. GLUCOPHAGE [Concomitant]
     Dosage: 500 MG, BID
  9. SPIRIVA [Concomitant]
     Dosage: 18 UKN, DAILY
  10. CELEXA [Concomitant]
     Dosage: 5 MG, QD
  11. LAXA-TABS [Concomitant]
     Dosage: 17 G, QD

REACTIONS (3)
  - MUSCULAR WEAKNESS [None]
  - DECREASED APPETITE [None]
  - HYPOTENSION [None]
